FAERS Safety Report 7445057-9 (Version None)
Quarter: 2011Q2

REPORT INFORMATION
  Report Type: 
  Country: None (occurrence: None)
  Receive Date: 20110429
  Receipt Date: 20110419
  Transmission Date: 20111010
  Serious: Yes (Hospitalization, Other)
  Sender: FDA-Public Use
  Company Number: PHHY2010MX48104

PATIENT
  Sex: Female

DRUGS (1)
  1. ACLASTA [Suspect]
     Indication: OSTEOPOROSIS PROPHYLAXIS
     Dosage: 1 AMPOULE (5 MG/100) I.V. PER YEAR
     Route: 042
     Dates: start: 20100507

REACTIONS (8)
  - GAIT DISTURBANCE [None]
  - BONE PAIN [None]
  - BACK PAIN [None]
  - JOINT STIFFNESS [None]
  - PELVIC PAIN [None]
  - MOVEMENT DISORDER [None]
  - ARTHRALGIA [None]
  - MUSCULOSKELETAL DISCOMFORT [None]
